FAERS Safety Report 7644248-1 (Version None)
Quarter: 2011Q3

REPORT INFORMATION
  Report Type: 
  Country: None (occurrence: None)
  Receive Date: 20110729
  Receipt Date: 20110720
  Transmission Date: 20111222
  Serious: Yes (Other)
  Sender: FDA-Public Use
  Company Number: PHFR2011GB03574

PATIENT
  Sex: Male

DRUGS (2)
  1. CLOZAPINE [Suspect]
     Indication: SCHIZOPHRENIA
     Dosage: 500 MG, QD
     Route: 048
     Dates: start: 20100920
  2. KWELLS [Concomitant]
     Route: 065

REACTIONS (4)
  - SLEEP APNOEA SYNDROME [None]
  - CHEST PAIN [None]
  - DYSPNOEA [None]
  - SALIVARY HYPERSECRETION [None]
